FAERS Safety Report 8862662 (Version 1)
Quarter: 2012Q4

REPORT INFORMATION
  Report Type: 
  Country: US (occurrence: US)
  Receive Date: 20121026
  Receipt Date: 20121026
  Transmission Date: 20130627
  Serious: Yes (Other)
  Sender: FDA-Public Use
  Company Number: US-PFIZER INC-2012267299

PATIENT
  Sex: Female

DRUGS (2)
  1. CELEBREX [Suspect]
     Indication: BACK DISORDER
     Dosage: UNK
  2. CORTISONE ACETATE [Suspect]
     Indication: SPINAL FUSION SURGERY
     Dosage: UNK
     Dates: start: 2001

REACTIONS (1)
  - Atrial fibrillation [Unknown]
